FAERS Safety Report 6709791-8 (Version None)
Quarter: 2010Q2

REPORT INFORMATION
  Report Type: 
  Country: None (occurrence: None)
  Receive Date: 20100503
  Receipt Date: 20100503
  Transmission Date: 20101027
  Serious: Yes (Other)
  Sender: FDA-Public Use
  Company Number: None

PATIENT
  Age: 9 Year
  Sex: Male
  Weight: 39.0093 kg

DRUGS (2)
  1. CHILDREN'S MOTRIN [Suspect]
     Indication: HEADACHE
     Dosage: 3 TSP PO
     Route: 048
     Dates: start: 20100327, end: 20100429
  2. CHILDREN'S MOTRIN [Suspect]
     Indication: PYREXIA
     Dosage: 3 TSP PO
     Route: 048
     Dates: start: 20100327, end: 20100429

REACTIONS (4)
  - ASTHMA [None]
  - COUGH [None]
  - NAUSEA [None]
  - VOMITING [None]
